FAERS Safety Report 4753600-3 (Version None)
Quarter: 2005Q3

REPORT INFORMATION
  Report Type: 
  Country: None (occurrence: None)
  Receive Date: 20050826
  Receipt Date: 20040818
  Transmission Date: 20060218
  Serious: No
  Sender: FDA-Public Use
  Company Number: US-GLAXOSMITHKLINE-A0522657A

PATIENT
  Age: 66 Year
  Sex: Male

DRUGS (1)
  1. BECONASE [Suspect]
     Indication: DRUG USE FOR UNKNOWN INDICATION
     Route: 045
     Dates: start: 20031201, end: 20040101

REACTIONS (2)
  - HEADACHE [None]
  - NAUSEA [None]
